FAERS Safety Report 18923585 (Version 1)
Quarter: 2021Q1

REPORT INFORMATION
  Report Type: Other
  Country: PT (occurrence: PT)
  Receive Date: 20210222
  Receipt Date: 20210222
  Transmission Date: 20210420
  Serious: Yes (Death, Other)
  Sender: FDA-Public Use
  Company Number: PT-ROCHE-2772474

PATIENT
  Age: 63 Year
  Sex: Male

DRUGS (9)
  1. VEMURAFENIB. [Suspect]
     Active Substance: VEMURAFENIB
     Indication: METASTASES TO LUNG
     Route: 065
     Dates: start: 201801
  2. COBIMETINIB. [Suspect]
     Active Substance: COBIMETINIB
     Dosage: DOSE REDUCTION
     Route: 065
     Dates: start: 201803
  3. COBIMETINIB. [Suspect]
     Active Substance: COBIMETINIB
     Indication: METASTASES TO LUNG
     Route: 065
     Dates: start: 201801
  4. PEMBROLIZUMAB. [Concomitant]
     Active Substance: PEMBROLIZUMAB
     Indication: METASTASES TO LUNG
  5. IPILIMUMAB [Concomitant]
     Active Substance: IPILIMUMAB
  6. TRAMETINIB [Concomitant]
     Active Substance: TRAMETINIB
  7. COBIMETINIB. [Suspect]
     Active Substance: COBIMETINIB
     Route: 065
     Dates: start: 201810
  8. DABRAFENIB [Concomitant]
     Active Substance: DABRAFENIB
  9. DACARBAZINE. [Concomitant]
     Active Substance: DACARBAZINE

REACTIONS (2)
  - Retinal detachment [Unknown]
  - Ocular toxicity [Unknown]
